FAERS Safety Report 9083076 (Version 1)
Quarter: 2013Q1

REPORT INFORMATION
  Report Type: Report from Study
  Country: US (occurrence: US)
  Receive Date: 20130131
  Receipt Date: 20130131
  Transmission Date: 20140127
  Serious: No
  Sender: FDA-Public Use
  Company Number: US-ABBOTT-12P-163-0991840-00

PATIENT
  Age: 34 None
  Sex: Female
  Weight: 64.92 kg

DRUGS (2)
  1. HUMIRA [Suspect]
     Indication: PSORIASIS
     Dates: start: 2011
  2. HUMIRA [Suspect]
     Dates: start: 201207

REACTIONS (8)
  - Incorrect storage of drug [Unknown]
  - Incorrect storage of drug [Unknown]
  - Vomiting [Recovered/Resolved]
  - Vomiting [Recovered/Resolved]
  - Influenza [Recovered/Resolved]
  - Joint injury [Recovered/Resolved]
  - Poor quality drug administered [Unknown]
  - Poor quality drug administered [Unknown]
